FAERS Safety Report 18736818 (Version 1)
Quarter: 2021Q1

REPORT INFORMATION
  Report Type: Other
  Country: GR (occurrence: GR)
  Receive Date: 20210113
  Receipt Date: 20210113
  Transmission Date: 20210419
  Serious: Yes (Death, Life-Threatening, Hospitalization, Other)
  Sender: FDA-Public Use
  Company Number: GR-BIOLOGICAL E. LTD-2105291

PATIENT
  Age: 70 Year
  Sex: Male

DRUGS (10)
  1. DAPTOMYCIN. [Suspect]
     Active Substance: DAPTOMYCIN
     Indication: PRODUCT USED FOR UNKNOWN INDICATION
     Route: 065
  2. TIGECYCLINE. [Suspect]
     Active Substance: TIGECYCLINE
     Route: 042
  3. METRONIDAZOLE. [Suspect]
     Active Substance: METRONIDAZOLE
     Route: 042
  4. IMMUNOGLOBULIN (IVIG) [Suspect]
     Active Substance: HUMAN IMMUNOGLOBULIN G
     Route: 065
  5. CASPOFUNGIN ACETATE. [Suspect]
     Active Substance: CASPOFUNGIN ACETATE
     Route: 065
  6. VANCOMYCIN HYDROCHLORIDE. [Suspect]
     Active Substance: VANCOMYCIN HYDROCHLORIDE
     Route: 065
  7. MEROPENEM. [Suspect]
     Active Substance: MEROPENEM
     Route: 065
  8. MEROPENEM. [Suspect]
     Active Substance: MEROPENEM
     Route: 065
  9. GENTAMICIN. [Suspect]
     Active Substance: GENTAMICIN
  10. COLISTIN [Suspect]
     Active Substance: COLISTIN
     Route: 042

REACTIONS (4)
  - Septic shock [Fatal]
  - Condition aggravated [Fatal]
  - Drug ineffective [Fatal]
  - Multiple organ dysfunction syndrome [Fatal]
